FAERS Safety Report 13182905 (Version 3)
Quarter: 2017Q1

REPORT INFORMATION
  Report Type: Spontaneous
  Country: US (occurrence: US)
  Receive Date: 20170203
  Receipt Date: 20170308
  Transmission Date: 20170428
  Serious: Yes (Other)
  Sender: FDA-Public Use
  Company Number: US-009507513-1702USA001484

PATIENT
  Age: 25 Year
  Sex: Female

DRUGS (1)
  1. INTRON A [Suspect]
     Active Substance: INTERFERON ALFA-2B
     Indication: HYPEREOSINOPHILIC SYNDROME
     Dosage: 50 MICROGRAM, QW
     Route: 058
     Dates: start: 201204

REACTIONS (5)
  - Nausea [Unknown]
  - Headache [Unknown]
  - Hepatic enzyme increased [Unknown]
  - Depression [Unknown]
  - Suicidal ideation [Unknown]
